FAERS Safety Report 8833932 (Version 1)
Quarter: 2012Q4

REPORT INFORMATION
  Report Type: Spontaneous
  Country: US (occurrence: None)
  Receive Date: 20121010
  Receipt Date: 20121010
  Transmission Date: 20130627
  Serious: Yes (Other)
  Sender: FDA-Public Use
  Company Number: None

PATIENT
  Age: 51 Year
  Sex: Male
  Weight: 102.06 kg

DRUGS (1)
  1. SYMBYAX [Suspect]
     Route: 048
     Dates: start: 20120908, end: 20120916

REACTIONS (1)
  - Depression [None]
